FAERS Safety Report 9966675 (Version 1)
Quarter: 2014Q1

REPORT INFORMATION
  Report Type: Report from Study
  Country: US (occurrence: US)
  Receive Date: 20140305
  Receipt Date: 20140305
  Transmission Date: 20141002
  Serious: No
  Sender: FDA-Public Use
  Company Number: US-ABBVIE-13P-163-1119725-00

PATIENT
  Age: 63 Year
  Sex: Female

DRUGS (11)
  1. HUMIRA [Suspect]
     Indication: COLITIS ULCERATIVE
     Dates: start: 20130618
  2. HUMIRA [Suspect]
     Indication: RHEUMATOID ARTHRITIS
  3. METHYLPREDNISOLONE [Concomitant]
     Indication: COLITIS ULCERATIVE
     Dosage: REDUCING DOSE EVERY 3 DAYS FROM 32MG TO 2 MG
  4. CYMBALTA [Concomitant]
     Indication: DEPRESSION
  5. COLAZAL [Concomitant]
     Indication: COLITIS ULCERATIVE
  6. ZANTAC [Concomitant]
     Indication: COLITIS ULCERATIVE
  7. SINGULAIR [Concomitant]
     Indication: HYPERSENSITIVITY
  8. XYZAL [Concomitant]
     Indication: HYPERSENSITIVITY
  9. FLONASE [Concomitant]
     Indication: HYPERSENSITIVITY
  10. TRAMADOL [Concomitant]
     Indication: PAIN
     Dosage: PRN
  11. FUROSEMIDE [Concomitant]
     Indication: FLUID RETENTION

REACTIONS (2)
  - Oropharyngeal pain [Not Recovered/Not Resolved]
  - Fatigue [Unknown]
